FAERS Safety Report 20998406 (Version 1)
Quarter: 2022Q2

REPORT INFORMATION
  Report Type: Spontaneous
  Country: FR (occurrence: FR)
  Receive Date: 20220623
  Receipt Date: 20220623
  Transmission Date: 20220721
  Serious: Yes (Life-Threatening, Hospitalization, Other)
  Sender: FDA-Public Use
  Company Number: None

PATIENT
  Age: 26 Year
  Sex: Female
  Weight: 106 kg

DRUGS (7)
  1. VENLAFAXINE HCL [Suspect]
     Active Substance: VENLAFAXINE HYDROCHLORIDE
     Indication: Intentional overdose
     Dosage: UNK
     Route: 048
     Dates: start: 20220523, end: 20220523
  2. AMITRIPTYLINE [Suspect]
     Active Substance: AMITRIPTYLINE
     Indication: Intentional overdose
     Dosage: UNK
     Route: 048
     Dates: start: 20220523, end: 20220523
  3. LOXAPINE [Suspect]
     Active Substance: LOXAPINE
     Indication: Intentional overdose
     Dosage: UNK
     Route: 048
     Dates: start: 20220523, end: 20220523
  4. CYAMEMAZINE [Suspect]
     Active Substance: CYAMEMAZINE
     Indication: Intentional overdose
     Dosage: UNK
     Route: 048
     Dates: start: 20220523, end: 20220523
  5. ZOPICLONE [Suspect]
     Active Substance: ZOPICLONE
     Indication: Intentional overdose
     Dosage: UNK
     Route: 048
     Dates: start: 20220523, end: 20220523
  6. HYDROXYZINE HYDROCHLORIDE [Suspect]
     Active Substance: HYDROXYZINE HYDROCHLORIDE
     Indication: Intentional overdose
     Dosage: UNK
     Route: 048
     Dates: start: 20220523, end: 20220523
  7. AMOXAPINE [Suspect]
     Active Substance: AMOXAPINE
     Indication: Intentional overdose
     Dosage: UNK
     Route: 048
     Dates: start: 20220523, end: 20220523

REACTIONS (6)
  - Poisoning deliberate [Recovered/Resolved]
  - Coma [Recovered/Resolved]
  - Tachypnoea [Recovered/Resolved]
  - Hepatic cytolysis [Recovered/Resolved]
  - Tachycardia [Recovered/Resolved]
  - Hyperglycaemia [Recovered/Resolved]

NARRATIVE: CASE EVENT DATE: 20220523
